FAERS Safety Report 13256317 (Version 1)
Quarter: 2017Q1

REPORT INFORMATION
  Report Type: Spontaneous
  Country: US (occurrence: US)
  Receive Date: 20170221
  Receipt Date: 20170221
  Transmission Date: 20170428
  Serious: No
  Sender: FDA-Public Use
  Company Number: US-GLAXOSMITHKLINE-US2017023223

PATIENT
  Age: 78 Year
  Sex: Male

DRUGS (1)
  1. FLOVENT DISKUS [Suspect]
     Active Substance: FLUTICASONE PROPIONATE
     Indication: OESOPHAGITIS
     Dosage: 220 MCG
     Route: 048
     Dates: start: 201701

REACTIONS (5)
  - Device use error [Unknown]
  - Wrong technique in product usage process [Unknown]
  - Underdose [Unknown]
  - Off label use [Not Recovered/Not Resolved]
  - Product use issue [Unknown]

NARRATIVE: CASE EVENT DATE: 201701
